FAERS Safety Report 8679983 (Version 2)
Quarter: 2013Q1

REPORT INFORMATION
  Report Type: Spontaneous
  Country: US (occurrence: None)
  Receive Date: 20120706
  Receipt Date: 20130219
  Transmission Date: 20140127
  Serious: Yes (Hospitalization, Other)
  Sender: FDA-Public Use
  Company Number: DSU-2012-05228

PATIENT
  Age: 68 Year
  Sex: Male

DRUGS (5)
  1. BENICAR [Suspect]
     Route: 048
     Dates: start: 2007, end: 20100416
  2. ZANTAC (RANITIDINE HYDROCHLORIDE) (RANITIDINE HYDROCHLORIDE) [Concomitant]
  3. KLOR-CON (POTASSIUM CHLORIDE) (POTASSIUM CHLORIDE) [Concomitant]
  4. VYTORIN (SIMVASTATIN, EZETIMIBE) (SIMVASTATIN, EZETIMIBE) [Concomitant]
  5. CELEBREX (CELECOXIB) (CELECOXIB) [Concomitant]

REACTIONS (3)
  - MALABSORPTION [None]
  - WEIGHT DECREASED [None]
  - GASTRITIS [None]
